FAERS Safety Report 10044270 (Version 1)
Quarter: 2014Q1

REPORT INFORMATION
  Report Type: Spontaneous
  Country: FR (occurrence: FR)
  Receive Date: 20140328
  Receipt Date: 20140328
  Transmission Date: 20141002
  Serious: Yes (Other)
  Sender: FDA-Public Use
  Company Number: FR-JNJFOC-20140315173

PATIENT
  Age: 41 Year
  Sex: Female

DRUGS (4)
  1. REMICADE [Suspect]
     Indication: RHEUMATOID ARTHRITIS
     Route: 042
     Dates: start: 20130627
  2. DAFALGAN [Concomitant]
     Indication: PAIN
     Route: 048
  3. EUPANTOL [Concomitant]
     Route: 048
  4. UVEDOSE [Concomitant]
     Route: 048

REACTIONS (1)
  - Erythromelalgia [Not Recovered/Not Resolved]
